FAERS Safety Report 20881628 (Version 4)
Quarter: 2022Q3

REPORT INFORMATION
  Report Type: Report from Study
  Country: GB (occurrence: GB)
  Receive Date: 20220527
  Receipt Date: 20220727
  Transmission Date: 20221027
  Serious: Yes (Congenital Anomaly)
  Sender: FDA-Public Use
  Company Number: GB-GILEAD-2020-0454921

PATIENT
  Sex: Male

DRUGS (7)
  1. LOPINAVIR\RITONAVIR [Suspect]
     Active Substance: LOPINAVIR\RITONAVIR
     Indication: Maternal exposure timing unspecified
     Dosage: PRIOR TO CONCEPTION
     Route: 064
  2. TRUVADA [Suspect]
     Active Substance: EMTRICITABINE\TENOFOVIR DISOPROXIL FUMARATE
     Indication: Maternal exposure timing unspecified
     Dosage: 1 DOSAGE FORM
     Route: 064
  3. TRUVADA [Suspect]
     Active Substance: EMTRICITABINE\TENOFOVIR DISOPROXIL FUMARATE
     Route: 064
  4. VIRAMUNE [Suspect]
     Active Substance: NEVIRAPINE
     Indication: Maternal exposure timing unspecified
     Route: 064
  5. VIRAMUNE [Suspect]
     Active Substance: NEVIRAPINE
     Route: 064
  6. VIRAMUNE [Suspect]
     Active Substance: NEVIRAPINE
     Route: 064
  7. VIRAMUNE [Suspect]
     Active Substance: NEVIRAPINE
     Route: 064

REACTIONS (4)
  - Developmental delay [Unknown]
  - Speech disorder [Unknown]
  - Speech disorder developmental [Unknown]
  - Foetal exposure during pregnancy [Unknown]

NARRATIVE: CASE EVENT DATE: 20181213
